FAERS Safety Report 14405278 (Version 3)
Quarter: 2018Q2

REPORT INFORMATION
  Report Type: Spontaneous
  Country: DK (occurrence: DK)
  Receive Date: 20180118
  Receipt Date: 20180422
  Transmission Date: 20180711
  Serious: Yes (Hospitalization, Other)
  Sender: FDA-Public Use
  Company Number: DK-APOTEX-2018AP005870

PATIENT
  Age: 62 Year
  Sex: Male

DRUGS (2)
  1. METFORMIN [Concomitant]
     Active Substance: METFORMIN HYDROCHLORIDE
     Indication: PRODUCT USED FOR UNKNOWN INDICATION
     Route: 065
  2. LOSARTANKALIUM ORIFARM [Suspect]
     Active Substance: LOSARTAN POTASSIUM
     Indication: PRODUCT USED FOR UNKNOWN INDICATION
     Dosage: 100 MG, UNK
     Route: 065

REACTIONS (6)
  - Overdose [Unknown]
  - Metabolic acidosis [Recovering/Resolving]
  - Blood pressure systolic decreased [Recovered/Resolved]
  - Toxicity to various agents [Recovering/Resolving]
  - Hyperglycaemia [Recovering/Resolving]
  - Hypotension [Recovering/Resolving]
